FAERS Safety Report 12384625 (Version 1)
Quarter: 2016Q2

REPORT INFORMATION
  Report Type: Spontaneous
  Country: US (occurrence: US)
  Receive Date: 20160519
  Receipt Date: 20160519
  Transmission Date: 20160815
  Serious: No
  Sender: FDA-Public Use
  Company Number: US-PFIZER INC-2016252830

PATIENT
  Age: 58 Year

DRUGS (21)
  1. HYDROCORTISONE. [Concomitant]
     Active Substance: HYDROCORTISONE
     Dosage: 2.5 %, 1X/DAY (MONDAY-FRIDAY. SKIP WEEKENDS)
  2. AMBIEN [Concomitant]
     Active Substance: ZOLPIDEM TARTRATE
     Indication: INSOMNIA
     Dosage: 10 MG,AS NEEDED (1 TABLET BY MOUTH AT BEDTIME AS NEEDED
     Route: 048
  3. ESIDRIX [Concomitant]
     Active Substance: HYDROCHLOROTHIAZIDE
     Dosage: 25 MG, 1X/DAY
     Route: 048
  4. CAPSAICIN. [Concomitant]
     Active Substance: CAPSAICIN
     Indication: ARTHRALGIA
     Dosage: APPLY 1 APPLICATION TO AFFECTED AREA AS NEEDED.
     Route: 061
  5. ZOLOFT [Concomitant]
     Active Substance: SERTRALINE HYDROCHLORIDE
     Dosage: 200 MG, 1X/DAY (ONCE DAILY)
     Route: 048
  6. EXENATIDE [Concomitant]
     Active Substance: EXENATIDE
     Dosage: 2 MG, WEEKLY(INJECT 2 MG SUBCUTANEOUSLY ONCE EACH WEEK.)
     Route: 058
  7. FLONASE [Concomitant]
     Active Substance: FLUTICASONE PROPIONATE
     Dosage: UNK UNK, 1X/DAY (USE 2 SPRAY IN EACH NOSTRIL ONCE DAILY/ 50 MCG/ACTUATION )
     Route: 045
  8. DESYREL [Concomitant]
     Active Substance: TRAZODONE HYDROCHLORIDE
     Dosage: 50 MG, 1X/DAY (ONCE DAILY AT BEDTIME)
     Route: 048
  9. NORVASC [Concomitant]
     Active Substance: AMLODIPINE BESYLATE
     Dosage: 10 MG, 1X/DAY (2 TABLET BY MOUTH ONCE DAILY)
     Route: 048
  10. NEURONTIN [Concomitant]
     Active Substance: GABAPENTIN
     Dosage: 300 MG, 3X/DAY
     Route: 048
  11. HYDRODIURIL [Concomitant]
     Active Substance: HYDROCHLOROTHIAZIDE
     Dosage: 25 MG, 1X/DAY
     Route: 048
  12. HUMALOG [Concomitant]
     Active Substance: INSULIN LISPRO
     Dosage: 10 IU, 3X/DAY (100UNIT/ML )
  13. PRAVACHOL [Concomitant]
     Active Substance: PRAVASTATIN SODIUM
     Dosage: 20 MG, 1X/DAY )(ONCE DAILY)
     Route: 048
  14. NIZORAL [Concomitant]
     Active Substance: KETOCONAZOLE
     Dosage: 2 %, APPLY TO SCALP AT LEAST 3 TIMES WEEKLY. LEAVE ON FOR 5 MINUTE THEN WASH OFF.
  15. LANTUS [Concomitant]
     Active Substance: INSULIN GLARGINE
     Dosage: 35 IU, DAILY (100UNIT/ML/ INJECT 35 UNITS, AT BEDTIME)
     Route: 058
  16. GLUCOPHAGE [Concomitant]
     Active Substance: METFORMIN HYDROCHLORIDE
     Dosage: 500 MG, 2X/DAY
     Route: 048
  17. VIAGRA [Suspect]
     Active Substance: SILDENAFIL CITRATE
     Indication: SEXUAL DYSFUNCTION
     Dosage: 100 MG, AS NEEDED(30-60 MINUTE BEFORE SEXUAL INTERCOURSE)
     Route: 048
     Dates: start: 20160426
  18. SELSUN [Concomitant]
     Active Substance: SELENIUM SULFIDE
     Dosage: 2.5%, USE TO WASH FACE DAILY
  19. ULTRAM [Concomitant]
     Active Substance: TRAMADOL HYDROCHLORIDE
     Indication: PAIN
     Dosage: 50 MG, AS NEEDED(EVERY 4 HOUR AS NEEDED FOR PAIN)
     Route: 048
  20. TYLENOL [Concomitant]
     Active Substance: ACETAMINOPHEN
     Indication: PAIN
     Dosage: UNK UNK, AS NEEDED (TAKE 1-2 TABLET BY MOUTH EVERY 12 HOUR )
     Route: 048
  21. NIZORAL [Concomitant]
     Active Substance: KETOCONAZOLE
     Dosage: 2 %, APPLY ON BEARD AREA ONCE DAILY AS NEEDED

REACTIONS (1)
  - Drug effect decreased [Unknown]
